FAERS Safety Report 23710649 (Version 2)
Quarter: 2024Q2

REPORT INFORMATION
  Report Type: Spontaneous
  Country: PT (occurrence: PT)
  Receive Date: 20240405
  Receipt Date: 20240425
  Transmission Date: 20240715
  Serious: Yes (Hospitalization, Congenital Anomaly, Other)
  Sender: FDA-Public Use
  Company Number: PT-SANDOZ-SDZ2024PT027691

PATIENT
  Age: 37 Week
  Sex: Male
  Weight: 2.11 kg

DRUGS (1)
  1. ENALAPRIL [Suspect]
     Active Substance: ENALAPRIL
     Indication: Gestational hypertension
     Dosage: 20 MILLIGRAM, ONCE A DAY
     Route: 064

REACTIONS (7)
  - Renal failure [Unknown]
  - Renal failure neonatal [Recovering/Resolving]
  - Hypotension [Recovered/Resolved]
  - Renin-angiotensin system inhibition [Unknown]
  - Angiotensin converting enzyme decreased [Unknown]
  - Metabolic acidosis [Recovered/Resolved]
  - Foetal exposure during pregnancy [Unknown]
